FAERS Safety Report 15234291 (Version 1)
Quarter: 2018Q3

REPORT INFORMATION
  Report Type: Spontaneous
  Country: ES (occurrence: ES)
  Receive Date: 20180803
  Receipt Date: 20180803
  Transmission Date: 20181010
  Serious: Yes (Hospitalization)
  Sender: FDA-Public Use
  Company Number: ES-CONCORDIA PHARMACEUTICALS INC.-E2B_00015251

PATIENT
  Age: 79 Year
  Sex: Female

DRUGS (9)
  1. BISOPROLOL (2328A) [Concomitant]
     Active Substance: BISOPROLOL
     Route: 048
  2. ZITROMAX 500 MG COMPRIMIDOS RECUBIERTOS CON PELICULA, 3 COMPRIMIDOS [Concomitant]
  3. XARELTO 20 MG COMPRIMIDOS RECUBIERTOS CON PELICULA (28 COMPRIMIDOS), 2 [Concomitant]
     Route: 048
  4. FUROSEMIDA (1615A) [Concomitant]
     Active Substance: FUROSEMIDE
     Route: 048
  5. ENALAPRIL + HIDROCLOROTIAZIDA [Concomitant]
     Active Substance: ENALAPRIL MALEATE\HYDROCHLOROTHIAZIDE
     Route: 048
  6. TARDYFERON 80 MG COMPRIMIDOS RECUBIERTOS, 30 COMPRIMIDOS [Concomitant]
     Route: 048
  7. OMEPRAZOL (2141A) [Concomitant]
     Active Substance: OMEPRAZOLE
     Route: 048
  8. DIGOXIN. [Suspect]
     Active Substance: DIGOXIN
     Indication: ATRIAL FIBRILLATION
     Route: 048
     Dates: start: 2018, end: 20180525
  9. BUDESONIDA (2291A) [Concomitant]
     Active Substance: BUDESONIDE
     Route: 055

REACTIONS (2)
  - Toxicity to various agents [Recovered/Resolved]
  - Acute kidney injury [Recovered/Resolved]

NARRATIVE: CASE EVENT DATE: 20180525
